FAERS Safety Report 24265509 (Version 2)
Quarter: 2024Q3

REPORT INFORMATION
  Report Type: Spontaneous
  Country: US (occurrence: US)
  Receive Date: 20240829
  Receipt Date: 20240908
  Transmission Date: 20241016
  Serious: No
  Sender: BAUSCH AND LOMB
  Company Number: US-BAUSCHBL-2024BNL032217

PATIENT
  Age: 70 Year
  Sex: Female

DRUGS (2)
  1. DEXAMETHASONE SODIUM PHOSPHATE [Suspect]
     Active Substance: DEXAMETHASONE PHOSPHATE\DEXAMETHASONE SODIUM PHOSPHATE
     Indication: Product used for unknown indication
     Dosage: 1 DROP INTO THE RIGHT EYE FOUR TIMES DAILY
     Route: 047
     Dates: start: 20240627
  2. DEXAMETHASONE SODIUM PHOSPHATE [Suspect]
     Active Substance: DEXAMETHASONE PHOSPHATE\DEXAMETHASONE SODIUM PHOSPHATE
     Dosage: 1 DROP INTO THE RIGHT EYE FOUR TIMES DAILY
     Route: 047
     Dates: start: 20240806

REACTIONS (5)
  - Erythema [Unknown]
  - Pain [Unknown]
  - Discomfort [Unknown]
  - Reaction to preservatives [Unknown]
  - Product quality issue [Unknown]

NARRATIVE: CASE EVENT DATE: 20240801
